FAERS Safety Report 12521146 (Version 3)
Quarter: 2016Q4

REPORT INFORMATION
  Report Type: Spontaneous
  Country: US (occurrence: US)
  Receive Date: 20160701
  Receipt Date: 20161011
  Transmission Date: 20170207
  Serious: No
  Sender: FDA-Public Use
  Company Number: US-AMGEN-USASP2016082609

PATIENT
  Sex: Female
  Weight: 45 kg

DRUGS (1)
  1. SENSIPAR [Suspect]
     Active Substance: CINACALCET HYDROCHLORIDE
     Indication: PRODUCT USED FOR UNKNOWN INDICATION
     Dosage: 30 MG, QOD
     Route: 048
     Dates: start: 201608

REACTIONS (5)
  - Cognitive disorder [Unknown]
  - Blood parathyroid hormone decreased [Unknown]
  - Intentional product misuse [Unknown]
  - Drug dose omission [Unknown]
  - Blood parathyroid hormone increased [Unknown]
